FAERS Safety Report 7591439-4 (Version None)
Quarter: 2011Q3

REPORT INFORMATION
  Report Type: 
  Country: None (occurrence: None)
  Receive Date: 20110701
  Receipt Date: 20110701
  Transmission Date: 20111222
  Serious: Yes (Other)
  Sender: FDA-Public Use
  Company Number: None

PATIENT
  Sex: Female
  Weight: 65.7716 kg

DRUGS (1)
  1. SUPREP BOWEL PREP KIT [Suspect]
     Indication: BOWEL PREPARATION
     Dosage: 1 BOTTLE MIXED WITH 16 OZ H2O 2X PO
     Route: 048
     Dates: start: 20110628, end: 20110629

REACTIONS (9)
  - ERUCTATION [None]
  - GASTROINTESTINAL SOUNDS ABNORMAL [None]
  - HYPERHIDROSIS [None]
  - NAUSEA [None]
  - CHILLS [None]
  - PARAESTHESIA [None]
  - HEADACHE [None]
  - RHINORRHOEA [None]
  - ABDOMINAL PAIN [None]
